FAERS Safety Report 12222791 (Version 1)
Quarter: 2016Q1

REPORT INFORMATION
  Report Type: Spontaneous
  Country: TR (occurrence: TR)
  Receive Date: 20160330
  Receipt Date: 20160330
  Transmission Date: 20160526
  Serious: Yes (Hospitalization)
  Sender: FDA-Public Use
  Company Number: CHPA2016TR003542

PATIENT
  Age: 9 Year
  Sex: Female
  Weight: 42 kg

DRUGS (3)
  1. ACETYLSALICYLIC ACID [Suspect]
     Active Substance: ASPIRIN
     Indication: ARTHRITIS
     Dosage: 3 G, QD
     Route: 065
     Dates: start: 2015, end: 20160215
  2. ACETYLSALICYLIC ACID [Suspect]
     Active Substance: ASPIRIN
     Indication: CARDITIS
  3. ACETYLSALICYLIC ACID [Suspect]
     Active Substance: ASPIRIN
     Indication: RHEUMATIC FEVER

REACTIONS (12)
  - Liver injury [Unknown]
  - Urticaria [Recovering/Resolving]
  - Off label use [Unknown]
  - Asthenia [Unknown]
  - Eosinophilia [Recovered/Resolved]
  - Vomiting [Unknown]
  - Drug reaction with eosinophilia and systemic symptoms [Recovered/Resolved]
  - Lymphadenopathy [Recovering/Resolving]
  - Rash maculo-papular [Recovered/Resolved]
  - Alanine aminotransferase increased [Recovered/Resolved]
  - Pruritus [Unknown]
  - Erythema [Unknown]
